FAERS Safety Report 5126188-5 (Version None)
Quarter: 2006Q3

REPORT INFORMATION
  Report Type: 
  Country: None (occurrence: None)
  Receive Date: 20060825
  Receipt Date: 20051018
  Transmission Date: 20061208
  Serious: Yes (Other)
  Sender: FDA-Public Use
  Company Number: HQWYE145721OCT05

PATIENT
  Age: 5 Year
  Sex: Female
  Weight: 20.43 kg

DRUGS (1)
  1. CHILDREN'S ADVIL [Suspect]
     Indication: HEADACHE
     Dosage: 1.5 MG TEASPOONS X 1, ORAL
     Route: 048
     Dates: start: 20051017, end: 20051017

REACTIONS (2)
  - INSOMNIA [None]
  - NIGHTMARE [None]
